FAERS Safety Report 21560520 (Version 1)
Quarter: 2022Q4

REPORT INFORMATION
  Report Type: Report from Study
  Country: IL (occurrence: IL)
  Receive Date: 20221107
  Receipt Date: 20221107
  Transmission Date: 20230113
  Serious: Yes (Other)
  Sender: FDA-Public Use
  Company Number: IL-ABBVIE-4187964

PATIENT
  Sex: Male

DRUGS (1)
  1. HUMIRA [Suspect]
     Active Substance: ADALIMUMAB
     Indication: Crohn^s disease
     Dosage: FORM STRENGTH: 40 MG
     Route: 058
     Dates: start: 20220209

REACTIONS (8)
  - Renal neoplasm [Unknown]
  - Benign neoplasm [Unknown]
  - Renal mass [Unknown]
  - Purulence [Unknown]
  - Urinary occult blood [Unknown]
  - Crohn^s disease [Unknown]
  - Blood urine present [Unknown]
  - Renal cancer [Unknown]
